FAERS Safety Report 15610069 (Version 1)
Quarter: 2018Q4

REPORT INFORMATION
  Report Type: Spontaneous
  Country: CA (occurrence: CA)
  Receive Date: 20181113
  Receipt Date: 20181113
  Transmission Date: 20190205
  Serious: Yes (Death)
  Sender: FDA-Public Use
  Company Number: CA-TEVA-2018-CA-975065

PATIENT
  Age: 21 Year
  Sex: Male
  Weight: 71 kg

DRUGS (3)
  1. OXYCODONE [Suspect]
     Active Substance: OXYCODONE
     Route: 065
  2. COCAINE [Suspect]
     Active Substance: COCAINE
     Route: 065
  3. ALCOHOL. [Suspect]
     Active Substance: ALCOHOL
     Route: 065

REACTIONS (1)
  - Toxicity to various agents [Fatal]
